FAERS Safety Report 9994653 (Version 1)
Quarter: 2014Q1

REPORT INFORMATION
  Report Type: Spontaneous
  Country: DE (occurrence: DE)
  Receive Date: 20140311
  Receipt Date: 20140311
  Transmission Date: 20141002
  Serious: Yes (Life-Threatening, Hospitalization)
  Sender: FDA-Public Use
  Company Number: DE-RANBAXY-2014RR-78623

PATIENT
  Age: 54 Year
  Sex: Female
  Weight: 90 kg

DRUGS (3)
  1. CEFUROXIM [Suspect]
     Indication: ATYPICAL PNEUMONIA
     Dosage: 1 DF, BID
     Route: 065
  2. DOXYCYCLINE [Suspect]
     Indication: ATYPICAL PNEUMONIA
     Dosage: 200 MG, QD
     Route: 065
  3. CAPRELSA [Suspect]
     Indication: THYROID CANCER
     Dosage: 300 MG, QD
     Route: 065

REACTIONS (1)
  - Pancreatitis [Recovering/Resolving]
